FAERS Safety Report 5618265-7 (Version None)
Quarter: 2008Q1

REPORT INFORMATION
  Report Type: 
  Country: None (occurrence: None)
  Receive Date: 20080207
  Receipt Date: 20080130
  Transmission Date: 20080703
  Serious: Yes (Other)
  Sender: FDA-Public Use
  Company Number: US-ROCHE-544995

PATIENT
  Age: 73 Year
  Sex: Female

DRUGS (4)
  1. BONIVA [Suspect]
     Indication: OSTEOPOROSIS
     Dosage: THE PATIENT WAS TAKING BONIVA 150 MG ONCE DAILY
     Route: 048
     Dates: start: 20070101, end: 20080101
  2. SYNTHROID [Concomitant]
  3. FEXOFENADINE [Concomitant]
  4. ACTIVELLA [Concomitant]

REACTIONS (2)
  - GINGIVAL RECESSION [None]
  - TOOTH DISORDER [None]
